FAERS Safety Report 22233701 (Version 1)
Quarter: 2023Q2

REPORT INFORMATION
  Report Type: Spontaneous
  Country: JP (occurrence: JP)
  Receive Date: 20230420
  Receipt Date: 20230420
  Transmission Date: 20230722
  Serious: Yes (Other)
  Sender: FDA-Public Use
  Company Number: JP-SHIRE-JP201718026

PATIENT
  Age: 12 Year
  Sex: Male
  Weight: 44 kg

DRUGS (8)
  1. INTUNIV [Suspect]
     Active Substance: GUANFACINE HYDROCHLORIDE
     Indication: Attention deficit hyperactivity disorder
     Dosage: 3 MILLIGRAM, QD
     Route: 048
     Dates: start: 20170711, end: 20170719
  2. INTUNIV [Suspect]
     Active Substance: GUANFACINE HYDROCHLORIDE
     Dosage: 1 MILLIGRAM, QD
     Route: 048
     Dates: start: 20170714, end: 20170721
  3. INTUNIV [Suspect]
     Active Substance: GUANFACINE HYDROCHLORIDE
     Dosage: 1 MILLIGRAM, QD
     Route: 048
     Dates: start: 20170719, end: 20170721
  4. INTUNIV [Suspect]
     Active Substance: GUANFACINE HYDROCHLORIDE
     Dosage: 1 MILLIGRAM, QD
     Route: 048
     Dates: start: 20170720, end: 20170721
  5. ROZEREM [Suspect]
     Active Substance: RAMELTEON
     Indication: Insomnia
     Dosage: 8 MILLIGRAM, QD
     Route: 048
     Dates: start: 20170711
  6. LAMICTAL [Suspect]
     Active Substance: LAMOTRIGINE
     Indication: Mood altered
     Dosage: 25 MILLIGRAM, QD
     Route: 048
     Dates: start: 20170228
  7. TANDOSPIRONE CITRATE [Suspect]
     Active Substance: TANDOSPIRONE CITRATE
     Indication: Decreased appetite
     Dosage: 30 MILLIGRAM, QD
     Route: 048
     Dates: start: 20170710
  8. ZYPREXA [Suspect]
     Active Substance: OLANZAPINE
     Indication: Depression
     Dosage: 5 MILLIGRAM, QD
     Route: 048
     Dates: start: 20170714

REACTIONS (6)
  - Hypotension [Recovered/Resolved]
  - Disturbance in attention [Unknown]
  - Pallor [Unknown]
  - Decreased appetite [Unknown]
  - Asthenia [Unknown]
  - Medication error [Unknown]

NARRATIVE: CASE EVENT DATE: 20170720
